FAERS Safety Report 13815230 (Version 1)
Quarter: 2017Q3

REPORT INFORMATION
  Report Type: Spontaneous
  Country: US (occurrence: US)
  Receive Date: 20170729
  Receipt Date: 20170729
  Transmission Date: 20171127
  Serious: No
  Sender: FDA-Public Use
  Company Number: None

PATIENT
  Age: 58 Year
  Sex: Male
  Weight: 62.1 kg

DRUGS (12)
  1. HYDROCONE-ACETAMINOPHEN 10-325 [Suspect]
     Active Substance: ACETAMINOPHEN\HYDROCODONE BITARTRATE
     Indication: PAIN
     Dosage: ?          QUANTITY:180 TABLET(S);?
     Route: 048
     Dates: start: 20170430
  2. VASCEPA [Concomitant]
     Active Substance: ICOSAPENT ETHYL
  3. GNC MEGA MEN 50 PLUS [Concomitant]
  4. METFORMIN [Concomitant]
     Active Substance: METFORMIN HYDROCHLORIDE
  5. ONGLYZA [Concomitant]
     Active Substance: SAXAGLIPTIN HYDROCHLORIDE
  6. SAINT JUDES NEURO STIMULATION [Concomitant]
  7. CINNAMON. [Concomitant]
     Active Substance: CINNAMON
  8. TEA [Concomitant]
     Active Substance: TEA LEAF
  9. OXYCONTIN [Concomitant]
     Active Substance: OXYCODONE HYDROCHLORIDE
  10. CALCIUM +D3 [Concomitant]
     Active Substance: CALCIUM\CHOLECALCIFEROL
  11. LYRICA [Concomitant]
     Active Substance: PREGABALIN
  12. ATENOLOL. [Concomitant]
     Active Substance: ATENOLOL

REACTIONS (4)
  - Blister [None]
  - Pruritus [None]
  - Swelling [None]
  - Rash [None]

NARRATIVE: CASE EVENT DATE: 20170615
